FAERS Safety Report 8013253-8 (Version None)
Quarter: 2011Q4

REPORT INFORMATION
  Report Type: 
  Country: None (occurrence: None)
  Receive Date: 20111223
  Receipt Date: 20111219
  Transmission Date: 20120403
  Serious: Yes (Hospitalization)
  Sender: FDA-Public Use
  Company Number: TPA2011A06950

PATIENT
  Age: 40 Year
  Sex: Male
  Weight: 353 kg

DRUGS (1)
  1. ACTOS [Suspect]
     Indication: DIABETES MELLITUS
     Dosage: 30 MG, 1 IN 1 D, PER ORAL
     Route: 048
     Dates: start: 20110301, end: 20111001

REACTIONS (5)
  - POLLAKIURIA [None]
  - ABDOMINAL PAIN LOWER [None]
  - HAEMATURIA [None]
  - DYSURIA [None]
  - BLADDER CANCER [None]
